FAERS Safety Report 21810172 (Version 2)
Quarter: 2023Q1

REPORT INFORMATION
  Report Type: Report from Study
  Country: CN (occurrence: CN)
  Receive Date: 20230103
  Receipt Date: 20230113
  Transmission Date: 20230418
  Serious: Yes (Death, Hospitalization, Other)
  Sender: FDA-Public Use
  Company Number: CN-ROCHE-3251484

PATIENT
  Age: 42 Year
  Sex: Female

DRUGS (1)
  1. ERLOTINIB [Suspect]
     Active Substance: ERLOTINIB
     Indication: Non-small cell lung cancer
     Route: 048
     Dates: start: 20170124

REACTIONS (3)
  - COVID-19 [Fatal]
  - Hydronephrosis [Unknown]
  - Catheter site discharge [Unknown]

NARRATIVE: CASE EVENT DATE: 20221220
